FAERS Safety Report 5959278-5 (Version None)
Quarter: 2008Q4

REPORT INFORMATION
  Report Type: 
  Country: None (occurrence: None)
  Receive Date: 20081120
  Receipt Date: 20081112
  Transmission Date: 20090506
  Serious: Yes (Hospitalization)
  Sender: FDA-Public Use
  Company Number: ES-BRISTOL-MYERS SQUIBB COMPANY-14412084

PATIENT
  Age: 49 Year
  Sex: Female

DRUGS (1)
  1. LYSODREN [Suspect]
     Indication: ADRENOCORTICAL CARCINOMA
     Dosage: REINTRODUCED ON 31OCT08 AT 2G/DAY.

REACTIONS (3)
  - ASTHENIA [None]
  - PERFORMANCE STATUS DECREASED [None]
  - SOMNOLENCE [None]
